FAERS Safety Report 9826222 (Version 1)
Quarter: 2013Q4

REPORT INFORMATION
  Report Type: Spontaneous
  Country: US (occurrence: None)
  Receive Date: 20131112
  Receipt Date: 20131112
  Transmission Date: 20140711
  Serious: Yes (Other)
  Sender: FDA-Public Use
  Company Number: E2B_00000669

PATIENT
  Age: 62 Year
  Sex: Female

DRUGS (16)
  1. LISINOPRIL [Suspect]
     Indication: PRODUCT USED FOR UNKNOWN INDICATION
     Dates: start: 20121113
  2. CICLOSPORIN+CICLOSPORIN A (NEORAL)UNKNOWN) [Concomitant]
  3. LANSOPRAZOLE (UNKNOWN) [Concomitant]
  4. PREDNISOLONE (UNKNOWN) [Concomitant]
  5. ATORVASTATIN (UNKNOWN) [Concomitant]
  6. ALENDRONIC ACID (UNKNOWN) [Concomitant]
  7. CALCIUM CARBONATE (ADCAL)(UNKNOWN) [Concomitant]
  8. FUROSEMIDE (UNKNOWN) [Concomitant]
  9. FUROSEMIDE (UNKNOWN) [Concomitant]
  10. FERROUS FUMARATE (UNKNOWN) [Concomitant]
  11. AZATHIOPRINE (UNKNOWN) [Concomitant]
  12. PROCHLORPERAZINE MALEATE (BUCCASTEM)UNKNOWN) [Concomitant]
  13. HEPARINOID (HERUDROID) (UNKNOWN) [Concomitant]
  14. FLUCLOXACILLIN (UNKNOWN) [Concomitant]
  15. PHENOXYMETHYLPENICILLIN (UNKNOWN) [Concomitant]
  16. CODEINE PHOSPHATE [Concomitant]

REACTIONS (2)
  - Angioedema [None]
  - Hypersensitivity [None]
